FAERS Safety Report 4388243-7 (Version None)
Quarter: 2004Q2

REPORT INFORMATION
  Report Type: 
  Country: None (occurrence: None)
  Receive Date: 20040625
  Receipt Date: 20040610
  Transmission Date: 20050107
  Serious: Yes (Hospitalization, Other)
  Sender: FDA-Public Use
  Company Number: 03-376-0768-1

PATIENT
  Sex: Female
  Weight: 122 kg

DRUGS (1)
  1. DAUNORUBICIN HCL [Suspect]
     Indication: ACUTE MYELOID LEUKAEMIA
     Dosage: 45 MG/M2 IV DAYS 1, 3
     Dates: start: 20031001

REACTIONS (9)
  - CHILLS [None]
  - DYSPNOEA [None]
  - FATIGUE [None]
  - INFECTION [None]
  - NEUTROPENIA [None]
  - PETECHIAE [None]
  - PLATELET COUNT DECREASED [None]
  - RED BLOOD CELL COUNT DECREASED [None]
  - WHITE BLOOD CELL COUNT DECREASED [None]
